FAERS Safety Report 5042041-X (Version None)
Quarter: 2006Q2

REPORT INFORMATION
  Report Type: 
  Country: None (occurrence: None)
  Receive Date: 20060627
  Receipt Date: 20060612
  Transmission Date: 20061013
  Serious: Yes (Hospitalization, Other)
  Sender: FDA-Public Use
  Company Number: 2006074755

PATIENT
  Age: 69 Year
  Sex: Female
  Weight: 77.1115 kg

DRUGS (4)
  1. BEXTRA [Suspect]
     Indication: ILL-DEFINED DISORDER
  2. ASPIRIN [Concomitant]
  3. MELOXICAM (MELOXICAM) [Concomitant]
  4. ACETAMINOPHEN [Concomitant]

REACTIONS (3)
  - CEREBROVASCULAR ACCIDENT [None]
  - CONFUSIONAL STATE [None]
  - MEMORY IMPAIRMENT [None]
